FAERS Safety Report 7136871-8 (Version None)
Quarter: 2010Q4

REPORT INFORMATION
  Report Type: 
  Country: None (occurrence: None)
  Receive Date: 20101206
  Receipt Date: 20090522
  Transmission Date: 20110411
  Serious: Yes (Death, Hospitalization)
  Sender: FDA-Public Use
  Company Number: US-ACTELION-A-NJ2008-21589

PATIENT

DRUGS (2)
  1. BOSENTAN TABLET 62.5 MG US [Suspect]
     Indication: PULMONARY ARTERIAL HYPERTENSION
     Dosage: 62.5 MG, BID
     Route: 048
     Dates: start: 20080801
  2. REVATIO [Concomitant]

REACTIONS (10)
  - CHRONIC OBSTRUCTIVE PULMONARY DISEASE [None]
  - DEATH [None]
  - DRUG INEFFECTIVE FOR UNAPPROVED INDICATION [None]
  - DYSPNOEA [None]
  - HEADACHE [None]
  - MUSCLE SPASMS [None]
  - MUSCULAR WEAKNESS [None]
  - OXYGEN SATURATION DECREASED [None]
  - PULMONARY FIBROSIS [None]
  - PULMONARY HYPERTENSION [None]
